FAERS Safety Report 7516021-6 (Version None)
Quarter: 2011Q2

REPORT INFORMATION
  Report Type: 
  Country: None (occurrence: None)
  Receive Date: 20110601
  Receipt Date: 20110523
  Transmission Date: 20111010
  Serious: Yes (Hospitalization, Other)
  Sender: FDA-Public Use
  Company Number: CN-ASTRAZENECA-2011SE28470

PATIENT
  Age: 73 Year
  Sex: Male

DRUGS (2)
  1. PLENDIL [Suspect]
     Route: 048
     Dates: start: 20091001
  2. PLENDIL [Suspect]
     Indication: HYPERTENSION
     Route: 048
     Dates: start: 20000101, end: 20090101

REACTIONS (3)
  - RECURRENT CANCER [None]
  - TONGUE NEOPLASM MALIGNANT STAGE UNSPECIFIED [None]
  - ORAL CAVITY NEOPLASM SURGERY [None]
